FAERS Safety Report 20118976 (Version 2)
Quarter: 2021Q4

REPORT INFORMATION
  Report Type: Spontaneous
  Country: US (occurrence: US)
  Receive Date: 20211126
  Receipt Date: 20211203
  Transmission Date: 20220303
  Serious: No
  Sender: FDA-Public Use
  Company Number: US-GLAXOSMITHKLINE-US2021AMR242613

PATIENT
  Sex: Female

DRUGS (3)
  1. ZEJULA [Suspect]
     Active Substance: NIRAPARIB
     Indication: Ovarian cancer
     Dosage: 300 MG, QD
     Dates: start: 202006
  2. ZEJULA [Suspect]
     Active Substance: NIRAPARIB
     Dosage: 200 MG, QD
  3. ACETAMINOPHEN\CODEINE PHOSPHATE [Suspect]
     Active Substance: ACETAMINOPHEN\CODEINE PHOSPHATE
     Indication: Limb injury
     Dosage: UNK

REACTIONS (16)
  - Rash [Unknown]
  - Skin burning sensation [Unknown]
  - Pigmentation disorder [Unknown]
  - Dry skin [Unknown]
  - Skin discolouration [Unknown]
  - Platelet count decreased [Unknown]
  - Photosensitivity reaction [Unknown]
  - Skin exfoliation [Unknown]
  - Blister [Unknown]
  - Erythema [Unknown]
  - Skin swelling [Unknown]
  - Hypersensitivity [Unknown]
  - Skin disorder [Unknown]
  - Condition aggravated [Unknown]
  - Drug hypersensitivity [Unknown]
  - Product use in unapproved indication [Unknown]

NARRATIVE: CASE EVENT DATE: 20210101
